FAERS Safety Report 4316037-7 (Version None)
Quarter: 2004Q1

REPORT INFORMATION
  Report Type: 
  Country: None (occurrence: None)
  Receive Date: 20040311
  Receipt Date: 20040301
  Transmission Date: 20041129
  Serious: Yes (Hospitalization)
  Sender: FDA-Public Use
  Company Number: TCI2004A00714

PATIENT
  Age: 53 Year
  Sex: Male

DRUGS (3)
  1. ACTOS [Suspect]
     Indication: DIABETES MELLITUS NON-INSULIN-DEPENDENT
     Dosage: 15 MG (15 MG, 1 IN 1 D)
     Route: 048
     Dates: start: 20000407, end: 20010525
  2. GLYBURIDE [Concomitant]
  3. BASEN TABLETS 0.3 (VOGLIBOSE) [Concomitant]

REACTIONS (1)
  - LUNG NEOPLASM MALIGNANT [None]
